FAERS Safety Report 5751584-2 (Version None)
Quarter: 2008Q2

REPORT INFORMATION
  Report Type: 
  Country: None (occurrence: None)
  Receive Date: 20080528
  Receipt Date: 20080519
  Transmission Date: 20081010
  Serious: Yes (Hospitalization)
  Sender: FDA-Public Use
  Company Number: PHHO2007US11023

PATIENT
  Sex: Female
  Weight: 72.9 kg

DRUGS (20)
  1. BLINDED CIBADREX T29368+ [Suspect]
     Indication: HYPERTENSION
     Dosage: LEVEL 1
     Route: 048
     Dates: start: 20040802
  2. LOTREL [Suspect]
     Indication: HYPERTENSION
     Dosage: LEVEL 1
     Route: 048
     Dates: start: 20040802
  3. BLINDED NO TREATMENT RECEIVED NOMED [Suspect]
     Indication: HYPERTENSION
     Dosage: LEVEL 1
     Route: 048
     Dates: start: 20040802
  4. BLINDED CIBADREX T29368+ [Suspect]
     Dosage: LEVEL 3
     Route: 048
  5. LOTREL [Suspect]
     Dosage: LEVEL 3
     Route: 048
  6. BLINDED NO TREATMENT RECEIVED NOMED [Suspect]
     Dosage: LEVEL 3
     Route: 048
  7. BLINDED CIBADREX T29368+ [Suspect]
     Dosage: NO TREATMENT
  8. LOTREL [Suspect]
     Dosage: NO TREATMENT
  9. BLINDED NO TREATMENT RECEIVED NOMED [Suspect]
     Dosage: NO TREATMENT
  10. BLINDED CIBADREX T29368+ [Suspect]
     Dosage: LEVEL 3
     Route: 048
  11. LOTREL [Suspect]
     Dosage: LEVEL 3
     Route: 048
  12. BLINDED NO TREATMENT RECEIVED NOMED [Suspect]
     Dosage: LEVEL 3
     Route: 048
  13. HYDROCHLOROTHIAZIDE [Suspect]
     Route: 048
     Dates: end: 20070411
  14. LIPITOR [Concomitant]
  15. ATENOLOL [Concomitant]
  16. ASPIRIN [Concomitant]
  17. GLIPIZIDE [Concomitant]
  18. TRAZODONE HCL [Concomitant]
  19. ZOLOFT [Concomitant]
  20. LANTUS [Concomitant]

REACTIONS (16)
  - ANAEMIA [None]
  - BLOOD CREATININE INCREASED [None]
  - BLOOD UREA INCREASED [None]
  - CAROTID ARTERY STENOSIS [None]
  - CEREBROVASCULAR ACCIDENT [None]
  - CONCOMITANT DISEASE PROGRESSION [None]
  - DIZZINESS [None]
  - FACIAL PALSY [None]
  - FALL [None]
  - HEADACHE [None]
  - HEMIPARESIS [None]
  - HYPERKALAEMIA [None]
  - HYPERTENSION [None]
  - MUSCULAR WEAKNESS [None]
  - RENAL FAILURE [None]
  - VERTIGO [None]
